FAERS Safety Report 6216648-8 (Version None)
Quarter: 2009Q2

REPORT INFORMATION
  Report Type: 
  Country: None (occurrence: None)
  Receive Date: 20090603
  Receipt Date: 20090603
  Transmission Date: 20091009
  Serious: Yes (Hospitalization)
  Sender: FDA-Public Use
  Company Number: None

PATIENT
  Age: 34 Year
  Sex: Female
  Weight: 71.6683 kg

DRUGS (1)
  1. HALFLYTELY [Suspect]
     Indication: COLONOSCOPY
     Dosage: 1 8OZ GLASS EVERY 10 MINUTES PO
     Route: 048
     Dates: start: 20090531, end: 20090601

REACTIONS (3)
  - ABDOMINAL PAIN [None]
  - BLOOD URINE PRESENT [None]
  - KIDNEY INFECTION [None]
